FAERS Safety Report 5562462-6 (Version None)
Quarter: 2007Q4

REPORT INFORMATION
  Report Type: 
  Country: None (occurrence: None)
  Receive Date: 20071215
  Receipt Date: 20070703
  Transmission Date: 20080405
  Serious: No
  Sender: FDA-Public Use
  Company Number: US-AMGEN-US134195

PATIENT
  Sex: Female
  Weight: 57.2 kg

DRUGS (7)
  1. ENBREL [Suspect]
     Indication: RHEUMATOID ARTHRITIS
     Route: 058
     Dates: start: 20000627, end: 20050518
  2. ENBREL [Suspect]
     Route: 058
     Dates: start: 20050101
  3. PREDNISONE [Concomitant]
     Route: 065
  4. BUSPAR [Concomitant]
     Route: 065
  5. XANAX [Concomitant]
     Route: 065
  6. LODINE [Concomitant]
     Route: 065
     Dates: start: 20050630
  7. NEXIUM [Concomitant]

REACTIONS (3)
  - ERYTHEMA MARGINATUM [None]
  - ERYTHEMA NODOSUM [None]
  - TUBERCULOSIS SKIN TEST POSITIVE [None]
